FAERS Safety Report 10262029 (Version 1)
Quarter: 2014Q2

REPORT INFORMATION
  Report Type: Spontaneous
  Country: US (occurrence: US)
  Receive Date: 20140626
  Receipt Date: 20140626
  Transmission Date: 20141212
  Serious: Yes (Other)
  Sender: FDA-Public Use
  Company Number: US-GLAXOSMITHKLINE-A1077095A

PATIENT
  Age: 74 Year
  Sex: Male

DRUGS (15)
  1. ARZERRA [Suspect]
     Indication: CHRONIC LYMPHOCYTIC LEUKAEMIA
     Dosage: 300MG WEEKLY
     Route: 042
     Dates: start: 20140605
  2. ACETAMINOPHEN [Suspect]
     Dates: start: 20140605
  3. BENADRYL [Suspect]
     Dates: start: 20140605
  4. DECADRON [Suspect]
     Dosage: 16MG WEEKLY
     Route: 065
     Dates: start: 20140605
  5. FUROSEMIDE [Suspect]
     Dosage: 40MG PER DAY
  6. LOSARTAN [Concomitant]
  7. FUROSEMIDE [Concomitant]
  8. FINASTERIDE [Concomitant]
  9. ONDANSETRON [Concomitant]
  10. MARINOL [Concomitant]
  11. MAGNESIUM [Concomitant]
  12. MULTIVITAMIN [Concomitant]
  13. AMBIEN [Concomitant]
  14. VITAMIN D3 [Concomitant]
  15. NEXIUM [Concomitant]

REACTIONS (9)
  - Pneumonia [Unknown]
  - Oxygen supplementation [Unknown]
  - Nausea [Unknown]
  - Lethargy [Unknown]
  - Ill-defined disorder [Unknown]
  - Asthenia [Unknown]
  - Respiratory disorder [Unknown]
  - Adverse drug reaction [Unknown]
  - Dizziness [Unknown]
